FAERS Safety Report 7716338-6 (Version None)
Quarter: 2011Q3

REPORT INFORMATION
  Report Type: 
  Country: None (occurrence: None)
  Receive Date: 20110829
  Receipt Date: 20110818
  Transmission Date: 20111222
  Serious: Yes (Other)
  Sender: FDA-Public Use
  Company Number: PHHY2011BR72570

PATIENT
  Sex: Female

DRUGS (5)
  1. CIPROFIBRATE [Concomitant]
     Indication: BLOOD CHOLESTEROL ABNORMAL
     Dosage: 100 MG, UNK
     Route: 048
  2. GALVUS MET [Suspect]
     Dosage: 2 DF, PRN
  3. DIOVAN HCT [Suspect]
     Dosage: 1 DF, DAILY
     Route: 048
  4. GALVUS MET [Suspect]
     Indication: DIABETES MELLITUS
     Dosage: 1 DF, DAILY
  5. LIPITOR [Concomitant]
     Indication: BLOOD CHOLESTEROL ABNORMAL
     Dosage: 4 MG, DAILY
     Route: 048

REACTIONS (7)
  - BLOOD PRESSURE DIASTOLIC DECREASED [None]
  - FEELING ABNORMAL [None]
  - DYSENTERY [None]
  - VOMITING [None]
  - HYPERGLYCAEMIA [None]
  - INFLUENZA [None]
  - WEIGHT DECREASED [None]
